FAERS Safety Report 9207739 (Version 2)
Quarter: 2013Q2

REPORT INFORMATION
  Report Type: Spontaneous
  Country: ES (occurrence: ES)
  Receive Date: 20130403
  Receipt Date: 20130408
  Transmission Date: 20140414
  Serious: Yes (Other)
  Sender: FDA-Public Use
  Company Number: ES-PFIZER INC-2013106831

PATIENT
  Age: 69 Year
  Sex: Female

DRUGS (4)
  1. LYRICA [Suspect]
     Indication: GENERALISED ANXIETY DISORDER
     Dosage: 25 MG, 2X/DAY
     Dates: start: 2010
  2. LYRICA [Suspect]
     Dosage: 75 MG, 1X/DAY
  3. LYRICA [Suspect]
     Dosage: 75 MG, 2X/DAY
  4. LYRICA [Suspect]
     Dosage: 150 MG / 75 MG

REACTIONS (6)
  - Asphyxia [Recovering/Resolving]
  - Pruritus [Recovering/Resolving]
  - Eyelid oedema [Recovering/Resolving]
  - Cough [Recovering/Resolving]
  - Breast pain [Recovering/Resolving]
  - Headache [Recovering/Resolving]
